FAERS Safety Report 5868503-0 (Version None)
Quarter: 2008Q3

REPORT INFORMATION
  Report Type: 
  Country: None (occurrence: None)
  Receive Date: 20080903
  Receipt Date: 20080827
  Transmission Date: 20090109
  Serious: Yes (Life-Threatening, Hospitalization)
  Sender: FDA-Public Use
  Company Number: JP-ASTRAZENECA-2008SE04128

PATIENT
  Age: 85 Year
  Sex: Female

DRUGS (2)
  1. BLOPRESS [Suspect]
     Indication: HYPERTENSION
     Route: 048
     Dates: start: 20071210, end: 20080813
  2. ALDACTONE [Suspect]
     Route: 048
     Dates: start: 20071210

REACTIONS (3)
  - BRADYCARDIA [None]
  - DIZZINESS [None]
  - HYPERKALAEMIA [None]
